FAERS Safety Report 14718243 (Version 9)
Quarter: 2021Q1

REPORT INFORMATION
  Report Type: Spontaneous
  Country: US (occurrence: US)
  Receive Date: 20180404
  Receipt Date: 20210211
  Transmission Date: 20210419
  Serious: Yes (Other)
  Sender: FDA-Public Use
  Company Number: US-SA-2018SA070641

PATIENT
  Age: 16 Year
  Sex: Male

DRUGS (12)
  1. PROTOPIC [Concomitant]
     Active Substance: TACROLIMUS
     Dosage: UNK UNK,UNK
     Route: 065
     Dates: start: 20170815, end: 20170920
  2. DUPIXENT [Suspect]
     Active Substance: DUPILUMAB
     Indication: DERMATITIS ATOPIC
     Dosage: 300 MG, QOW
     Route: 058
     Dates: start: 20170311
  3. DUPIXENT [Suspect]
     Active Substance: DUPILUMAB
     Indication: ECZEMA
     Dosage: UNK UNK,UNK
     Route: 058
     Dates: start: 20171015
  4. VITAMINS NOS [Concomitant]
     Active Substance: VITAMINS
  5. DUPIXENT [Suspect]
     Active Substance: DUPILUMAB
     Dosage: 300 MG,QOW
     Route: 058
     Dates: start: 20171026
  6. IBUPROFEN. [Concomitant]
     Active Substance: IBUPROFEN
     Dosage: 200 MG,UNK
     Route: 065
     Dates: start: 20170815
  7. CLARITINE [Concomitant]
     Active Substance: LORATADINE
     Dosage: UNK, QD
  8. TRIAMCINOLONE [Concomitant]
     Active Substance: TRIAMCINOLONE
     Dosage: UNK UNK,UNK
     Route: 065
     Dates: start: 20170815, end: 20170920
  9. GLICLAZIDE [Concomitant]
     Active Substance: GLICLAZIDE
     Dosage: 10 MG,UNK
     Route: 065
     Dates: start: 20170815
  10. DUPIXENT [Suspect]
     Active Substance: DUPILUMAB
     Dosage: 300 MG, QOW
     Route: 058
  11. DIPHENHYDRAMINE HYDROCHLORIDE. [Concomitant]
     Active Substance: DIPHENHYDRAMINE HYDROCHLORIDE
     Dosage: UNK UNK,UNK
     Route: 065
     Dates: start: 20170815, end: 20170920
  12. DUPIXENT [Suspect]
     Active Substance: DUPILUMAB
     Dosage: UNK UNK, 1X
     Dates: start: 201810, end: 201810

REACTIONS (11)
  - Nasopharyngitis [Unknown]
  - Injury associated with device [Unknown]
  - Drug dose omission by device [Unknown]
  - Needle issue [Unknown]
  - Skin haemorrhage [Unknown]
  - Product use issue [Unknown]
  - Device difficult to use [Unknown]
  - Dermatitis atopic [Recovered/Resolved]
  - Therapeutic response decreased [Unknown]
  - Pneumonia [Unknown]
  - Illness [Recovered/Resolved]

NARRATIVE: CASE EVENT DATE: 20180328
